FAERS Safety Report 6430482-5 (Version None)
Quarter: 2009Q4

REPORT INFORMATION
  Report Type: 
  Country: None (occurrence: None)
  Receive Date: 20091106
  Receipt Date: 20091028
  Transmission Date: 20100525
  Serious: Yes (Other)
  Sender: FDA-Public Use
  Company Number: US-ELI_LILLY_AND_COMPANY-US200910007643

PATIENT
  Sex: Female

DRUGS (2)
  1. HUMATROPE [Suspect]
     Dosage: UNK, UNKNOWN
     Dates: start: 20080201, end: 20081201
  2. LUPRON [Concomitant]
     Dosage: 11.25 MG, UNKNOWN

REACTIONS (1)
  - MYELOID LEUKAEMIA [None]
